FAERS Safety Report 7096773-2 (Version None)
Quarter: 2010Q4

REPORT INFORMATION
  Report Type: 
  Country: None (occurrence: None)
  Receive Date: 20101111
  Receipt Date: 20091130
  Transmission Date: 20110411
  Serious: No
  Sender: FDA-Public Use
  Company Number: US-KINGPHARMUSA00001-K200901508

PATIENT
  Sex: Female

DRUGS (3)
  1. FLECTOR [Suspect]
     Indication: ARTHRALGIA
     Dosage: UNK
     Route: 061
  2. VOLTAREN [Concomitant]
  3. TAGAMET [Concomitant]

REACTIONS (1)
  - HEADACHE [None]
